FAERS Safety Report 7963034-6 (Version None)
Quarter: 2011Q4

REPORT INFORMATION
  Report Type: 
  Country: None (occurrence: None)
  Receive Date: 20111207
  Receipt Date: 20111205
  Transmission Date: 20120403
  Serious: Yes (Congenital Anomaly, Other)
  Sender: FDA-Public Use
  Company Number: US-ABBOTT-11P-163-0842415-00

PATIENT

DRUGS (2)
  1. TRUVADA [Suspect]
     Indication: MATERNAL EXPOSURE TIMING UNSPECIFIED
     Route: 064
  2. KALETRA [Suspect]
     Indication: MATERNAL EXPOSURE TIMING UNSPECIFIED
     Route: 064

REACTIONS (8)
  - POLYDACTYLY [None]
  - ATRIAL SEPTAL DEFECT [None]
  - VENTRICULAR SEPTAL DEFECT [None]
  - HYPOSPADIAS [None]
  - MICROTIA [None]
  - OESOPHAGEAL ATRESIA [None]
  - KIDNEY MALFORMATION [None]
  - FOETAL EXPOSURE DURING PREGNANCY [None]
